FAERS Safety Report 6370901-6 (Version None)
Quarter: 2009Q3

REPORT INFORMATION
  Report Type: 
  Country: None (occurrence: None)
  Receive Date: 20090923
  Receipt Date: 20070904
  Transmission Date: 20100115
  Serious: Yes (Hospitalization)
  Sender: FDA-Public Use
  Company Number: US-ASTRAZENECA-2006UW22575

PATIENT
  Age: 57 Year
  Sex: Male
  Weight: 86.2 kg

DRUGS (16)
  1. SEROQUEL [Suspect]
     Indication: DEPRESSION
     Route: 048
     Dates: start: 20010919
  2. SEROQUEL [Suspect]
     Route: 048
     Dates: start: 20030101, end: 20050101
  3. ZOLOFT [Concomitant]
     Dosage: 50-200 MG
     Route: 048
  4. ANAFRANIL [Concomitant]
     Route: 048
  5. GLIPIZIDE [Concomitant]
     Dosage: 5-20 MG
     Route: 048
  6. NAPROXEN [Concomitant]
     Dosage: 375-500 MG
     Route: 048
  7. ULTRAM [Concomitant]
     Route: 048
  8. BACLOFEN [Concomitant]
     Dosage: 10 MG, ONE AND HALF TABLET AT BED TIME
     Route: 048
  9. HYDROCO [Concomitant]
     Dosage: 7.5/50-10/650 MG
     Route: 048
  10. CLONAZEPAM [Concomitant]
     Route: 048
  11. GLUCOVANCE [Concomitant]
     Dosage: 5/500 MG, ONE TABLET A DAY
     Route: 048
  12. LISINOPRIL [Concomitant]
     Dosage: 5-40 MG
     Route: 048
  13. LOPID [Concomitant]
     Route: 048
  14. LOTREL [Concomitant]
     Dosage: 10/40 MG
     Route: 048
  15. BENICAR HCT [Concomitant]
     Dosage: 20/12.5 MG
     Route: 065
  16. HALDOL [Concomitant]
     Dosage: 1 MG-4 MG
     Route: 048

REACTIONS (6)
  - AUTISM SPECTRUM DISORDER [None]
  - DELUSIONAL DISORDER, PERSECUTORY TYPE [None]
  - DIABETES MELLITUS [None]
  - GENERALISED ANXIETY DISORDER [None]
  - MAJOR DEPRESSION [None]
  - PSYCHOTIC DISORDER [None]
